FAERS Safety Report 15965327 (Version 1)
Quarter: 2019Q1

REPORT INFORMATION
  Report Type: Spontaneous
  Country: GB (occurrence: GB)
  Receive Date: 20190215
  Receipt Date: 20190215
  Transmission Date: 20190418
  Serious: No
  Sender: FDA-Public Use
  Company Number: GB-ALKEM LABORATORIES LIMITED-GB-ALKEM-2018-02206

PATIENT
  Age: 5 Year
  Sex: Female
  Weight: 18 kg

DRUGS (1)
  1. CEPHALEXIN. [Suspect]
     Active Substance: CEPHALEXIN
     Indication: GENITOURINARY TRACT INFECTION
     Dosage: 125MG/5ML
     Route: 048
     Dates: start: 20180127, end: 20180128

REACTIONS (2)
  - Lip swelling [Recovered/Resolved]
  - Swollen tongue [Recovered/Resolved]

NARRATIVE: CASE EVENT DATE: 20180128
